FAERS Safety Report 9353934 (Version 1)
Quarter: 2013Q2

REPORT INFORMATION
  Report Type: Spontaneous
  Country: AU (occurrence: AU)
  Receive Date: 20130618
  Receipt Date: 20130618
  Transmission Date: 20140414
  Serious: Yes (Life-Threatening, Other)
  Sender: FDA-Public Use
  Company Number: AU-WATSON-2013-10273

PATIENT
  Age: 14 Year
  Sex: 0

DRUGS (1)
  1. BACLOFEN (UNKNOWN) [Suspect]
     Indication: DRUG ABUSE
     Dosage: 500 MG, SINGLE
     Route: 065

REACTIONS (2)
  - Coma [Recovered/Resolved]
  - Drug abuse [Unknown]
